FAERS Safety Report 10235010 (Version 2)
Quarter: 2014Q2

REPORT INFORMATION
  Report Type: Report from Study
  Country: US (occurrence: US)
  Receive Date: 20140613
  Receipt Date: 20140613
  Transmission Date: 20141212
  Serious: Yes (Disabling, Other)
  Sender: FDA-Public Use
  Company Number: PHEH2014US010289

PATIENT
  Sex: Female

DRUGS (7)
  1. EXTAVIA [Suspect]
     Indication: MULTIPLE SCLEROSIS
     Dosage: 0.25 MG, QOD
     Route: 058
  2. EXTAVIA [Suspect]
     Indication: HYPERTENSION
  3. LORATA D [Concomitant]
     Dosage: UNK UKN, UNK
  4. NEURONTIN [Concomitant]
     Dosage: UNK UKN, UNK
  5. NUVIGIL [Concomitant]
     Dosage: UNK UKN, UNK
  6. DESIPRAMINE [Concomitant]
     Dosage: UNK UKN, UNK
     Route: 058
  7. LISINOPRIL [Concomitant]
     Dosage: UNK UKN, UNK

REACTIONS (2)
  - Pain [Not Recovered/Not Resolved]
  - Performance status decreased [Unknown]
